FAERS Safety Report 18150944 (Version 1)
Quarter: 2020Q3

REPORT INFORMATION
  Report Type: Spontaneous
  Country: US (occurrence: US)
  Receive Date: 20200814
  Receipt Date: 20200814
  Transmission Date: 20201103
  Serious: No
  Sender: FDA-Public Use
  Company Number: US-VERTEX PHARMACEUTICALS-2019-012515

PATIENT
  Age: 12 Year
  Sex: Female
  Weight: 53 kg

DRUGS (15)
  1. SERTRALINE [Concomitant]
     Active Substance: SERTRALINE HYDROCHLORIDE
     Dosage: UNK, QD
     Route: 048
  2. CREON [Concomitant]
     Active Substance: PANCRELIPASE AMYLASE\PANCRELIPASE LIPASE\PANCRELIPASE PROTEASE
     Dosage: 24/76/120K WITH MEALS
     Route: 048
  3. ACID CONTROL [Concomitant]
     Active Substance: FAMOTIDINE
     Dosage: UNK UNK, QD
     Route: 048
  4. AUGMENTINE [AMOXICILLIN;CLAVULANIC ACID] [Concomitant]
     Active Substance: AMOXICILLIN\CLAVULANIC ACID
     Dosage: UNK, QD
     Route: 048
  5. TRIKAFTA [Suspect]
     Active Substance: ELEXACAFTOR\IVACAFTOR\TEZACAFTOR
     Indication: CYSTIC FIBROSIS
     Dosage: ELEXACAFTOR 100MG/ TEZACAFTOR 50MG/ IVACAFTOR 75MG; IVACAFTOR 150MG; BID
     Route: 048
     Dates: start: 20191113
  6. CLONAZEPAM. [Concomitant]
     Active Substance: CLONAZEPAM
     Dosage: UNK UNK, QD
     Route: 048
  7. CLARITIN?D NOS [Concomitant]
     Active Substance: LORATADINE\PSEUDOEPHEDRINE SULFATE
     Dosage: 1 DOSAGE FORM, PRN
     Route: 048
  8. SODIUM CHLORIDE. [Concomitant]
     Active Substance: SODIUM CHLORIDE
     Dosage: UNK UNK, QD
  9. URSODIOL. [Concomitant]
     Active Substance: URSODIOL
     Dosage: UNK, BID
     Route: 048
  10. PULMOZYME [Concomitant]
     Active Substance: DORNASE ALFA
     Dosage: UNK UNK, QD
  11. TAURINE [Concomitant]
     Active Substance: TAURINE
     Dosage: UNK UNK, QD
     Route: 048
  12. MELATONIN [Concomitant]
     Active Substance: MELATONIN
     Dosage: UNK, QD
     Route: 048
  13. ACIDOPHILUS/PECTIN [Concomitant]
     Dosage: UNK UNK, QD
     Route: 048
  14. ALBUTEROL SULFATE. [Concomitant]
     Active Substance: ALBUTEROL SULFATE
     Dosage: UNK
  15. FISH OIL;PHYTOSTEROLS NOS [Concomitant]
     Dosage: UNK UNK, QD
     Route: 048

REACTIONS (7)
  - Flatulence [Unknown]
  - Headache [Recovered/Resolved]
  - Dizziness [Unknown]
  - Gastrointestinal disorder [Not Recovered/Not Resolved]
  - Rash [Unknown]
  - Decreased appetite [Not Recovered/Not Resolved]
  - Blood glucose abnormal [Not Recovered/Not Resolved]

NARRATIVE: CASE EVENT DATE: 201911
